FAERS Safety Report 4866915-5 (Version None)
Quarter: 2005Q4

REPORT INFORMATION
  Report Type: 
  Country: None (occurrence: None)
  Receive Date: 20051222
  Receipt Date: 20051209
  Transmission Date: 20060501
  Serious: Yes (Death, Life-Threatening)
  Sender: FDA-Public Use
  Company Number: 2005160608

PATIENT
  Age: 35 Year
  Sex: Female

DRUGS (5)
  1. VFEND [Suspect]
     Indication: SYSTEMIC MYCOSIS
     Dosage: 150 MG (150 MG, 1 IN 1 D), INTRAVENOUS
     Route: 042
     Dates: start: 20051031, end: 20051107
  2. ZOVIRAX [Concomitant]
  3. MEROPEN             (MEROPENEM) [Concomitant]
  4. SOLU-MEDROL [Concomitant]
  5. FOSFLUCONAZOLE                 (FOSFLUCONAZOLE) [Concomitant]

REACTIONS (4)
  - CONDITION AGGRAVATED [None]
  - DIALYSIS [None]
  - MULTI-ORGAN FAILURE [None]
  - RENAL IMPAIRMENT [None]
